FAERS Safety Report 9914734 (Version 1)
Quarter: 2014Q1

REPORT INFORMATION
  Report Type: Report from Study
  Country: NO (occurrence: NO)
  Receive Date: 20140220
  Receipt Date: 20140220
  Transmission Date: 20141002
  Serious: Yes (Hospitalization)
  Sender: FDA-Public Use
  Company Number: NO-RB-063876-14

PATIENT
  Age: 50 Year
  Sex: Male

DRUGS (6)
  1. SUBUTEX [Suspect]
     Indication: DRUG DEPENDENCE
     Dosage: AT THE TIME WHEN THE QUESTIONNAIRE WAS COMPLETED, PATIENT HAD BEEN ON SUBUTEX 1 YEAR 7 MONTHS
     Route: 065
  2. CANNABIS [Suspect]
     Indication: PRODUCT USED FOR UNKNOWN INDICATION
     Dosage: DETAILS UNKNOWN
     Route: 055
  3. CIPRALEX [Suspect]
     Indication: PRODUCT USED FOR UNKNOWN INDICATION
     Dosage: DOSING DETAILS UNKNOWN
     Route: 065
  4. REMERON [Suspect]
     Indication: PRODUCT USED FOR UNKNOWN INDICATION
     Dosage: DOSING DETAILS UNKNOWN
     Route: 065
  5. RIVOTRIL [Suspect]
     Indication: PRODUCT USED FOR UNKNOWN INDICATION
     Dosage: DOSING DETAILS UNKNOWN
     Route: 065
  6. BENZODIAZEPINE [Suspect]
     Indication: PRODUCT USED FOR UNKNOWN INDICATION
     Dosage: TAKES ON A REGULAR BASIS. SPECIFIC DOSING DETAILS UNKNOWN.
     Route: 065

REACTIONS (5)
  - Hospitalisation [Unknown]
  - Abdominal pain upper [Unknown]
  - Drug abuse [Unknown]
  - Intentional drug misuse [Unknown]
  - Drug diversion [Unknown]
